FAERS Safety Report 7424278-5 (Version None)
Quarter: 2011Q2

REPORT INFORMATION
  Report Type: 
  Country: None (occurrence: None)
  Receive Date: 20110413
  Receipt Date: 20100329
  Transmission Date: 20111010
  Serious: Yes (Other)
  Sender: FDA-Public Use
  Company Number: TOR-2011-0014

PATIENT
  Age: 64 Year
  Sex: Female

DRUGS (3)
  1. CRESTOR [Concomitant]
  2. FARESTON [Suspect]
     Indication: BREAST CANCER
     Dosage: 120MG/DAY/ORAL
     Route: 048
     Dates: start: 20080906, end: 20081107
  3. ANASTROZOLE [Concomitant]

REACTIONS (1)
  - HEPATIC FUNCTION ABNORMAL [None]
